FAERS Safety Report 20468526 (Version 1)
Quarter: 2022Q1

REPORT INFORMATION
  Report Type: Spontaneous
  Country: JP (occurrence: JP)
  Receive Date: 20220214
  Receipt Date: 20220214
  Transmission Date: 20220423
  Serious: No
  Sender: FDA-Public Use
  Company Number: JP-ELI_LILLY_AND_COMPANY-JP202202005132

PATIENT
  Age: 70 Year
  Sex: Male

DRUGS (9)
  1. DULOXETINE HYDROCHLORIDE [Suspect]
     Active Substance: DULOXETINE HYDROCHLORIDE
     Indication: Back pain
     Dosage: 20 MG, DAILY
     Route: 048
     Dates: start: 202105
  2. DULOXETINE HYDROCHLORIDE [Suspect]
     Active Substance: DULOXETINE HYDROCHLORIDE
     Indication: Osteoarthritis
     Dosage: 60 MG, DAILY
     Route: 048
  3. DULOXETINE HYDROCHLORIDE [Suspect]
     Active Substance: DULOXETINE HYDROCHLORIDE
     Dosage: 40 MG, DAILY
     Route: 048
  4. CELECOXIB [Concomitant]
     Active Substance: CELECOXIB
     Indication: Osteoarthritis
     Dosage: UNK
     Route: 048
  5. CELECOXIB [Concomitant]
     Active Substance: CELECOXIB
     Indication: Back pain
  6. ORYCTOLAGUS CUNICULUS SKIN [Concomitant]
     Active Substance: ORYCTOLAGUS CUNICULUS SKIN
     Indication: Back pain
     Dosage: UNK
     Route: 048
  7. ORYCTOLAGUS CUNICULUS SKIN [Concomitant]
     Active Substance: ORYCTOLAGUS CUNICULUS SKIN
     Indication: Osteoarthritis
  8. PREGABALIN [Concomitant]
     Active Substance: PREGABALIN
     Indication: Osteoarthritis
     Dosage: UNK
     Route: 048
  9. PREGABALIN [Concomitant]
     Active Substance: PREGABALIN
     Indication: Back pain

REACTIONS (1)
  - Hepatic function abnormal [Unknown]

NARRATIVE: CASE EVENT DATE: 20220202
